FAERS Safety Report 9447091 (Version 1)
Quarter: 2013Q3

REPORT INFORMATION
  Report Type: Spontaneous
  Country: US (occurrence: US)
  Receive Date: 20130807
  Receipt Date: 20130807
  Transmission Date: 20140515
  Serious: No
  Sender: FDA-Public Use
  Company Number: US-AMGEN-USASP2013053559

PATIENT
  Age: 66 Year
  Sex: Male
  Weight: 111.11 kg

DRUGS (16)
  1. ENBREL [Suspect]
     Indication: PRODUCT USED FOR UNKNOWN INDICATION
     Dosage: UNK
     Route: 065
     Dates: start: 2001, end: 2008
  2. HUMIRA [Suspect]
     Indication: RHEUMATOID ARTHRITIS
     Dosage: 40 MG, Q2WK
     Route: 065
     Dates: start: 2009
  3. GLIPIZIDE [Concomitant]
     Indication: TYPE 2 DIABETES MELLITUS
     Dosage: UNK
  4. METFORMIN [Concomitant]
     Indication: TYPE 2 DIABETES MELLITUS
     Dosage: UNK
  5. FENOFIBRATE [Concomitant]
     Dosage: UNK
     Dates: start: 1980
  6. LOSARTAN [Concomitant]
     Dosage: UNK
  7. METOPROLOL [Concomitant]
     Dosage: UNK
  8. BABY ASPIRIN [Concomitant]
  9. VITAMIN D3 [Concomitant]
     Dosage: UNK
  10. ARAVA [Concomitant]
     Dosage: UNK
  11. ALEVE [Concomitant]
     Indication: PAIN MANAGEMENT
     Dosage: UNK
  12. SIMPONI [Concomitant]
     Dosage: UNK
  13. ZOCOR [Concomitant]
  14. LIPITOR [Concomitant]
     Dosage: UNK
  15. METHOTREXATE [Concomitant]
     Dosage: UNK
     Dates: start: 1999
  16. PREDNISONE [Concomitant]
     Dosage: UNK
     Dates: start: 1999

REACTIONS (4)
  - Rheumatoid factor increased [Unknown]
  - Rheumatoid arthritis [Unknown]
  - Sinusitis [Recovered/Resolved]
  - Bronchitis [Recovered/Resolved]
